FAERS Safety Report 20942564 (Version 1)
Quarter: 2022Q2

REPORT INFORMATION
  Report Type: Spontaneous
  Country: ES (occurrence: ES)
  Receive Date: 20220610
  Receipt Date: 20220610
  Transmission Date: 20220721
  Serious: Yes (Other)
  Sender: FDA-Public Use
  Company Number: None

PATIENT
  Age: 62 Year
  Sex: Female

DRUGS (5)
  1. TRAMADOL [Suspect]
     Active Substance: TRAMADOL
     Indication: Back pain
     Dosage: 300 MILLIGRAM DAILY; 100MG 1-1-1 ,TRAMADOL (2389A)
     Route: 065
     Dates: start: 20210901, end: 20210923
  2. DEXKETOPROFEN [Suspect]
     Active Substance: DEXKETOPROFEN
     Indication: Back pain
     Dosage: 150 MILLIGRAM DAILY; 50MG 1-1-1 ,DEXKETOPROFENO (7312A) ,
     Route: 065
     Dates: start: 20210901, end: 20210923
  3. METAMIZOLE [Suspect]
     Active Substance: METAMIZOLE
     Indication: Back pain
     Dosage: 6 GRAM DAILY; 2G 1-1-1 ,METAMIZOL (111A)
     Route: 065
     Dates: start: 20210901, end: 20210923
  4. ACETAMINOPHEN [Suspect]
     Active Substance: ACETAMINOPHEN
     Indication: Back pain
     Dosage: PARACETAMOL (12A)
     Route: 065
     Dates: start: 20210831, end: 20210923
  5. MEROPENEM [Suspect]
     Active Substance: MEROPENEM
     Indication: Postoperative wound infection
     Dosage: MEROPENEM (7155A)
     Route: 065
     Dates: start: 20210920, end: 20210922

REACTIONS (1)
  - Hepatocellular injury [Recovered/Resolved]

NARRATIVE: CASE EVENT DATE: 20210922
